FAERS Safety Report 12823703 (Version 1)
Quarter: 2016Q4

REPORT INFORMATION
  Report Type: Spontaneous
  Country: AT (occurrence: AT)
  Receive Date: 20161007
  Receipt Date: 20161007
  Transmission Date: 20170207
  Serious: Yes (Other)
  Sender: FDA-Public Use
  Company Number: AT-BAYER-2016-188089

PATIENT
  Age: 54 Year
  Sex: Male

DRUGS (1)
  1. STIVARGA [Suspect]
     Active Substance: REGORAFENIB
     Indication: COLORECTAL CANCER METASTATIC
     Dosage: 120MG } 160MG
     Dates: start: 201504

REACTIONS (5)
  - Diarrhoea [None]
  - Metastases to lymph nodes [None]
  - Palmar-plantar erythrodysaesthesia syndrome [None]
  - Colorectal cancer metastatic [None]
  - Metastases to lung [None]

NARRATIVE: CASE EVENT DATE: 201601
